FAERS Safety Report 19902657 (Version 1)
Quarter: 2021Q3

REPORT INFORMATION
  Report Type: Spontaneous
  Country: CN (occurrence: CN)
  Receive Date: 20210930
  Receipt Date: 20210930
  Transmission Date: 20211014
  Serious: Yes (Other)
  Sender: FDA-Public Use
  Company Number: CN-JIANGSU HENGRUI MEDICINE CO., LTD.-2118992

PATIENT
  Age: 61 Year
  Sex: Female
  Weight: 45 kg

DRUGS (10)
  1. CAMRELIZUMAB FOR INJECTION [Suspect]
     Active Substance: CAMRELIZUMAB
     Route: 041
     Dates: start: 20210916, end: 20210916
  2. SODIUM CHLORIDE. [Concomitant]
     Active Substance: SODIUM CHLORIDE
     Route: 041
     Dates: start: 20210916, end: 20210916
  3. GLUCOSE [Concomitant]
     Active Substance: DEXTROSE
     Dates: start: 20210916, end: 20210916
  4. OXALIPLATIN INJECTION USP, 5 MG/ML, PACKAGED IN 50 MG/10 ML AND 100 MG [Suspect]
     Active Substance: OXALIPLATIN
     Indication: OESOPHAGEAL CARCINOMA
     Route: 041
     Dates: start: 20210916, end: 20210916
  5. PALONOSETRON HYDROCHLORIDE. [Concomitant]
     Active Substance: PALONOSETRON HYDROCHLORIDE
     Route: 041
     Dates: start: 20210916, end: 20210916
  6. DOCETAXEL. [Suspect]
     Active Substance: DOCETAXEL
     Route: 041
     Dates: start: 20210916, end: 20210916
  7. DEXAMETHASONE SODIUM PHOSPHATE. [Concomitant]
     Active Substance: DEXAMETHASONE SODIUM PHOSPHATE
     Route: 041
     Dates: start: 20210916, end: 20210916
  8. SODIUM CHLORIDE. [Concomitant]
     Active Substance: SODIUM CHLORIDE
     Dates: start: 20210916, end: 20210916
  9. CHLORPHENAMINE MALEATE [Concomitant]
     Active Substance: CHLORPHENIRAMINE MALEATE
     Route: 028
     Dates: start: 20210916, end: 20210916
  10. SODIUM CHLORIDE. [Concomitant]
     Active Substance: SODIUM CHLORIDE
     Route: 041
     Dates: start: 20210916, end: 20210916

REACTIONS (4)
  - Infusion related reaction [Recovered/Resolved]
  - Nausea [Recovered/Resolved]
  - Rash pruritic [Recovered/Resolved]
  - Gastrooesophageal reflux disease [Recovered/Resolved]

NARRATIVE: CASE EVENT DATE: 20210916
